FAERS Safety Report 16715904 (Version 1)
Quarter: 2019Q3

REPORT INFORMATION
  Report Type: Spontaneous
  Country: GB (occurrence: GB)
  Receive Date: 20190819
  Receipt Date: 20190819
  Transmission Date: 20191005
  Serious: Yes (Other)
  Sender: FDA-Public Use
  Company Number: GB-MYLANLABS-2019M1076372

PATIENT
  Age: 53 Year
  Sex: Male

DRUGS (2)
  1. WARFARIN [Suspect]
     Active Substance: WARFARIN
     Indication: ATRIAL FIBRILLATION
     Dosage: 4 MG, QD
     Route: 065
  2. AMIODARONE [Suspect]
     Active Substance: AMIODARONE
     Indication: ATRIAL FIBRILLATION
     Dosage: 200 MG, QD
     Route: 065

REACTIONS (9)
  - Dysstasia [Unknown]
  - Resting tremor [Unknown]
  - Hyperthyroidism [Recovering/Resolving]
  - International normalised ratio increased [Recovering/Resolving]
  - Acute kidney injury [Unknown]
  - Cardiac failure [Unknown]
  - Pleural effusion [Unknown]
  - Dyspnoea [Unknown]
  - Liver function test abnormal [Recovering/Resolving]
